FAERS Safety Report 25363934 (Version 1)
Quarter: 2025Q2

REPORT INFORMATION
  Report Type: Spontaneous
  Country: US (occurrence: US)
  Receive Date: 20250527
  Receipt Date: 20250527
  Transmission Date: 20250717
  Serious: No
  Sender: CALLIDITAS THERAPEUTICS AB
  Company Number: US-Calliditas-2025CAL01082

PATIENT
  Age: 53 Year
  Sex: Male

DRUGS (11)
  1. TARPEYO [Suspect]
     Active Substance: BUDESONIDE
     Indication: IgA nephropathy
     Route: 048
     Dates: start: 20240826
  2. ALBUTEROL SULFATE [Concomitant]
     Active Substance: ALBUTEROL SULFATE
  3. ATORVASTATIN [Concomitant]
     Active Substance: ATORVASTATIN
  4. ZETIA [Concomitant]
     Active Substance: EZETIMIBE
  5. FLONASE [Concomitant]
     Active Substance: FLUTICASONE PROPIONATE
  6. AVAPRO [Concomitant]
     Active Substance: IRBESARTAN
  7. JARDIANCE [Concomitant]
     Active Substance: EMPAGLIFLOZIN
  8. PHENTERMINE [Concomitant]
     Active Substance: PHENTERMINE
  9. QUETIAPINE [Concomitant]
     Active Substance: QUETIAPINE
  10. TAMSULOSIN [Concomitant]
     Active Substance: TAMSULOSIN
  11. TRIAMCINOLONE [Concomitant]
     Active Substance: TRIAMCINOLONE

REACTIONS (4)
  - Abdominal pain upper [Unknown]
  - Vomiting [Unknown]
  - Shoulder operation [Unknown]
  - Increased tendency to bruise [Unknown]
